FAERS Safety Report 8051885-1 (Version None)
Quarter: 2012Q1

REPORT INFORMATION
  Report Type: 
  Country: None (occurrence: None)
  Receive Date: 20120118
  Receipt Date: 20120113
  Transmission Date: 20120608
  Serious: Yes (Death)
  Sender: FDA-Public Use
  Company Number: US-VERTEX PHARMACEUTICALS INC.-AE-2012-000788

PATIENT
  Sex: Male

DRUGS (10)
  1. ALLEGRA [Concomitant]
  2. GLUCOPHAGE [Concomitant]
  3. PROVENTIL [Concomitant]
  4. INCIVEK [Suspect]
     Indication: HEPATITIS C
     Dates: start: 20111213, end: 20120109
  5. ATIVAN [Concomitant]
  6. PEGASYS [Concomitant]
     Indication: HEPATITIS C
     Route: 058
     Dates: start: 20111213, end: 20120109
  7. LYRICA [Concomitant]
  8. GLUCOTROL [Concomitant]
  9. NEXIUM [Concomitant]
  10. RIBAVIRIN [Concomitant]
     Indication: HEPATITIS C
     Route: 048
     Dates: start: 20111213, end: 20120109

REACTIONS (1)
  - VICTIM OF HOMICIDE [None]
